FAERS Safety Report 23563696 (Version 2)
Quarter: 2024Q2

REPORT INFORMATION
  Report Type: Report from Study
  Country: US (occurrence: US)
  Receive Date: 20240226
  Receipt Date: 20240420
  Transmission Date: 20240716
  Serious: Yes (Death, Hospitalization, Other)
  Sender: FDA-Public Use
  Company Number: US-JNJFOC-20240250711

PATIENT
  Age: 62 Year
  Sex: Male

DRUGS (3)
  1. SPRAVATO [Suspect]
     Active Substance: ESKETAMINE
     Indication: Depression
     Dosage: 56 MG, 1 TOTAL DOSES
     Dates: start: 20231017, end: 20231017
  2. SPRAVATO [Suspect]
     Active Substance: ESKETAMINE
     Indication: Major depression
     Dosage: 84 MG, 17 TOTAL DOSES
     Dates: start: 20231019, end: 20240319
  3. ABILIFY [Concomitant]
     Active Substance: ARIPIPRAZOLE
     Indication: Depression
     Route: 048

REACTIONS (5)
  - Completed suicide [Fatal]
  - Hospitalisation [Not Recovered/Not Resolved]
  - Depression [Unknown]
  - Therapy non-responder [Unknown]
  - Anxiety [Unknown]

NARRATIVE: CASE EVENT DATE: 20240207
